FAERS Safety Report 7497663-3 (Version None)
Quarter: 2011Q2

REPORT INFORMATION
  Report Type: 
  Country: None (occurrence: None)
  Receive Date: 20110523
  Receipt Date: 20110513
  Transmission Date: 20111010
  Serious: Yes (Hospitalization)
  Sender: FDA-Public Use
  Company Number: US-ASTRAZENECA-2011SE29277

PATIENT
  Sex: Female

DRUGS (3)
  1. LOSARTAN [Concomitant]
  2. LUCERNE [Concomitant]
  3. ATACAND [Suspect]
     Route: 048

REACTIONS (5)
  - HYPERTENSION [None]
  - DEHYDRATION [None]
  - DIABETES MELLITUS [None]
  - GLAUCOMA [None]
  - JOINT SWELLING [None]
